FAERS Safety Report 6823081-4 (Version None)
Quarter: 2010Q3

REPORT INFORMATION
  Report Type: 
  Country: None (occurrence: None)
  Receive Date: 20100708
  Receipt Date: 20100629
  Transmission Date: 20110219
  Serious: Yes (Hospitalization)
  Sender: FDA-Public Use
  Company Number: FR-MERCK-1007USA00531

PATIENT
  Age: 48 Year
  Sex: Male

DRUGS (1)
  1. HYDROCORTISONE [Suspect]
     Indication: ALLERGIC GRANULOMATOUS ANGIITIS
     Route: 048

REACTIONS (2)
  - ADRENAL INSUFFICIENCY [None]
  - ATRIAL FLUTTER [None]
